FAERS Safety Report 8890992 (Version 2)
Quarter: 2012Q4

REPORT INFORMATION
  Report Type: 
  Country: US (occurrence: US)
  Receive Date: 20121107
  Receipt Date: 20121218
  Transmission Date: 20130627
  Serious: Yes (Disabling, Other)
  Sender: FDA-Public Use
  Company Number: US-PURDUE-USA-2012-0095278

PATIENT
  Sex: Male

DRUGS (12)
  1. OXYCONTIN TABLETS [Suspect]
     Indication: PAIN
     Dosage: 40 mg, bid
     Route: 048
     Dates: start: 200901, end: 200901
  2. PERCOCET                           /00446701/ [Suspect]
     Indication: PAIN
     Dosage: 5 mg, UNK
     Route: 048
  3. DEPAKOTE [Suspect]
     Indication: PRODUCT USED FOR UNKNOWN INDICATION
     Dosage: UNK, see text
  4. DEPAKOTE [Suspect]
     Indication: DEPRESSION
  5. ABILIFY [Suspect]
     Indication: PRODUCT USED FOR UNKNOWN INDICATION
  6. ABILIFY [Suspect]
     Indication: DEPRESSION
  7. PAXIL [Suspect]
     Indication: PRODUCT USED FOR UNKNOWN INDICATION
     Dosage: UNK, see text
  8. PAXIL [Suspect]
     Indication: DEPRESSION
  9. KLONOPIN [Suspect]
     Indication: PRODUCT USED FOR UNKNOWN INDICATION
     Dosage: UNK, see text
  10. XANAX [Suspect]
     Indication: PANIC ATTACK
     Dosage: UNK, see text
  11. XANAX [Suspect]
     Indication: ANXIETY
  12. ATIVAN [Concomitant]
     Indication: PRODUCT USED FOR UNKNOWN INDICATION

REACTIONS (8)
  - Overdose [Recovered/Resolved with Sequelae]
  - Brain injury [Recovered/Resolved with Sequelae]
  - Pneumonia aspiration [Unknown]
  - Respiratory distress [Unknown]
  - Respiratory depression [Unknown]
  - Sedation [Unknown]
  - Miosis [Unknown]
  - Upper respiratory tract infection [Unknown]
